FAERS Safety Report 18259073 (Version 1)
Quarter: 2020Q3

REPORT INFORMATION
  Report Type: Spontaneous
  Country: US (occurrence: US)
  Receive Date: 20200911
  Receipt Date: 20200911
  Transmission Date: 20201103
  Serious: Yes (Hospitalization)
  Sender: FDA-Public Use
  Company Number: US-MYLANLABS-2020M1077871

PATIENT
  Age: 85 Year
  Sex: Female

DRUGS (1)
  1. DILTIAZEM. [Suspect]
     Active Substance: DILTIAZEM
     Indication: ATRIAL FIBRILLATION
     Dosage: EXTENDED?RELEASE TABLET
     Route: 048

REACTIONS (6)
  - Pharyngeal inflammation [Recovered/Resolved]
  - Stridor [Recovered/Resolved]
  - Pharyngeal mass [Recovered/Resolved]
  - Tracheal deviation [Recovered/Resolved]
  - Dysphagia [Recovered/Resolved]
  - Obstructive airways disorder [Recovered/Resolved]
